FAERS Safety Report 6962588-6 (Version None)
Quarter: 2010Q3

REPORT INFORMATION
  Report Type: 
  Country: None (occurrence: None)
  Receive Date: 20100902
  Receipt Date: 20100820
  Transmission Date: 20110219
  Serious: Yes (Other)
  Sender: FDA-Public Use
  Company Number: US-ELI_LILLY_AND_COMPANY-US201008006709

PATIENT
  Sex: Female
  Weight: 61.224 kg

DRUGS (18)
  1. PEMETREXED [Suspect]
     Indication: NON-SMALL CELL LUNG CANCER
     Dosage: 500 MG/M2, OTHER
     Route: 042
     Dates: start: 20100707
  2. CARBOPLATIN [Suspect]
     Indication: NON-SMALL CELL LUNG CANCER
     Dosage: 6 D/F, OTHER
     Route: 042
     Dates: start: 20100707
  3. BEVACIZUMAB [Suspect]
     Indication: NON-SMALL CELL LUNG CANCER
     Dosage: 10 MG/KG, OTHER
     Route: 042
     Dates: start: 20100707
  4. CALCIUM W/VITAMIN D /00188401/ [Concomitant]
     Indication: PROPHYLAXIS
     Dates: start: 20100701
  5. ALBUTEROL SULFATE AND IPRATROPIUM BROMIDE [Concomitant]
     Indication: PROPHYLAXIS
     Dates: start: 20100701
  6. FEXOFENADINE HCL [Concomitant]
     Indication: PROPHYLAXIS
     Dates: start: 20100701
  7. ASCORBIC ACID [Concomitant]
     Indication: PROPHYLAXIS
     Dates: start: 20100701
  8. PREMPRO [Concomitant]
     Indication: PROPHYLAXIS
     Dates: start: 20100701
  9. CRESTOR [Concomitant]
     Indication: PROPHYLAXIS
     Dates: start: 20100701
  10. SYNTHROID [Concomitant]
     Indication: PROPHYLAXIS
     Dates: start: 20100701
  11. CELEXA [Concomitant]
     Indication: PROPHYLAXIS
     Dates: start: 20100701
  12. OMEPRAZOLE [Concomitant]
     Indication: PROPHYLAXIS
     Dates: start: 20100701
  13. ALLEGRA [Concomitant]
     Indication: PROPHYLAXIS
     Dates: start: 20100701
  14. ADVAIR DISKUS 100/50 [Concomitant]
     Indication: PROPHYLAXIS
     Dates: start: 20100701
  15. FOLIC ACID [Concomitant]
     Indication: PROPHYLAXIS
     Dates: start: 20100702
  16. HYDROCODONE BITARTRATE/HOMATROPINE METHYBROMIDE [Concomitant]
     Indication: PROPHYLAXIS
     Dates: start: 20100707
  17. ZOFRAN [Concomitant]
     Indication: PROPHYLAXIS
     Dates: start: 20100707
  18. MEGACE [Concomitant]
     Indication: PROPHYLAXIS
     Dates: start: 20100819

REACTIONS (1)
  - DEVICE MALFUNCTION [None]
